FAERS Safety Report 6069724-7 (Version None)
Quarter: 2009Q1

REPORT INFORMATION
  Report Type: 
  Country: None (occurrence: None)
  Receive Date: 20090209
  Receipt Date: 20090127
  Transmission Date: 20090719
  Serious: Yes (Death)
  Sender: FDA-Public Use
  Company Number: DE-AMGEN-UK330660

PATIENT
  Sex: Female

DRUGS (4)
  1. KINERET [Suspect]
     Indication: RHEUMATOID ARTHRITIS
     Dates: start: 20040501, end: 20051201
  2. INFLIXIMAB [Concomitant]
     Route: 065
     Dates: start: 20030801, end: 20040501
  3. ADALIMUMAB [Concomitant]
     Route: 065
     Dates: start: 20051201
  4. METHOTREXATE [Concomitant]
     Route: 065
     Dates: start: 20030801

REACTIONS (2)
  - COMPLETED SUICIDE [None]
  - DEPRESSION [None]
